FAERS Safety Report 15771759 (Version 1)
Quarter: 2018Q4

REPORT INFORMATION
  Report Type: Spontaneous
  Country: US (occurrence: US)
  Receive Date: 20181207
  Receipt Date: 20181207
  Transmission Date: 20190205
  Serious: No
  Sender: FDA-Public Use
  Company Number: None

PATIENT
  Age: 33 Year
  Sex: Female

DRUGS (1)
  1. REBIF [Suspect]
     Active Substance: INTERFERON BETA-1A
     Dosage: ?          OTHER STRENGTH:44{CG/.5ML;?
     Dates: start: 201801, end: 201812

REACTIONS (2)
  - Pregnancy [None]
  - Exposure during pregnancy [None]

NARRATIVE: CASE EVENT DATE: 20181204
